FAERS Safety Report 23651841 (Version 1)
Quarter: 2024Q1

REPORT INFORMATION
  Report Type: Spontaneous
  Country: US (occurrence: US)
  Receive Date: 20240320
  Receipt Date: 20240320
  Transmission Date: 20240410
  Serious: No
  Sender: FDA-Public Use
  Company Number: US-BRISTOL-MYERS SQUIBB COMPANY-2024-043866

PATIENT
  Age: 72 Year
  Sex: Female

DRUGS (1)
  1. INREBIC [Suspect]
     Active Substance: FEDRATINIB HYDROCHLORIDE
     Indication: Chronic lymphocytic leukaemia
     Route: 048
     Dates: start: 20240221

REACTIONS (5)
  - Splenomegaly [Unknown]
  - Nausea [Unknown]
  - Dyspepsia [Unknown]
  - Bowel movement irregularity [Unknown]
  - Treatment noncompliance [Unknown]
